FAERS Safety Report 18841855 (Version 2)
Quarter: 2021Q1

REPORT INFORMATION
  Report Type: Spontaneous
  Country: CO (occurrence: CO)
  Receive Date: 20210204
  Receipt Date: 20210217
  Transmission Date: 20210419
  Serious: No
  Sender: FDA-Public Use
  Company Number: CO-AUROBINDO-AUR-APL-2021-004889

PATIENT
  Age: 65 Year
  Sex: Male
  Weight: 58.9 kg

DRUGS (1)
  1. ERTAGRAM 1 G [Suspect]
     Active Substance: ERTAPENEM SODIUM
     Indication: ANTIBIOTIC THERAPY
     Dosage: 1 GRAM, DAILY
     Route: 042
     Dates: start: 20201226, end: 20201226

REACTIONS (2)
  - Rash [Recovered/Resolved]
  - Skin lesion [Recovered/Resolved]

NARRATIVE: CASE EVENT DATE: 20201226
